FAERS Safety Report 5948391-4 (Version None)
Quarter: 2008Q4

REPORT INFORMATION
  Report Type: 
  Country: None (occurrence: None)
  Receive Date: 20081110
  Receipt Date: 20081110
  Transmission Date: 20090506
  Serious: Yes (Life-Threatening)
  Sender: FDA-Public Use
  Company Number: None

PATIENT
  Age: 65 Year
  Sex: Female
  Weight: 73.4827 kg

DRUGS (2)
  1. OSMOPREP [Suspect]
     Indication: BOWEL PREPARATION
     Dosage: 4 TABLETS AT A TIME 15 MINUTES PO
     Route: 048
     Dates: start: 20080114, end: 20080114
  2. OSMOPREP [Suspect]
     Indication: COLONOSCOPY
     Dosage: 4 TABLETS AT A TIME 15 MINUTES PO
     Route: 048
     Dates: start: 20080114, end: 20080114

REACTIONS (7)
  - ANAEMIA [None]
  - BLOOD PRESSURE INADEQUATELY CONTROLLED [None]
  - HYPOPHAGIA [None]
  - RENAL IMPAIRMENT [None]
  - RENAL INJURY [None]
  - VOMITING [None]
  - WEIGHT DECREASED [None]
